FAERS Safety Report 21690653 (Version 2)
Quarter: 2023Q1

REPORT INFORMATION
  Report Type: Spontaneous
  Country: FR (occurrence: FR)
  Receive Date: 20221206
  Receipt Date: 20230118
  Transmission Date: 20230418
  Serious: Yes (Other)
  Sender: FDA-Public Use
  Company Number: FR-AMGEN-FRASP2022208076

PATIENT
  Age: 63 Year

DRUGS (2)
  1. LUMAKRAS [Suspect]
     Active Substance: SOTORASIB
     Indication: Adenocarcinoma
     Dosage: UNK
     Route: 065
     Dates: end: 20221103
  2. LUMAKRAS [Suspect]
     Active Substance: SOTORASIB
     Indication: K-ras gene mutation
     Dosage: UNK
     Route: 065

REACTIONS (1)
  - Adenocarcinoma [Unknown]

NARRATIVE: CASE EVENT DATE: 20221102
